FAERS Safety Report 5809303-7 (Version None)
Quarter: 2008Q3

REPORT INFORMATION
  Report Type: 
  Country: None (occurrence: None)
  Receive Date: 20080714
  Receipt Date: 20080627
  Transmission Date: 20090109
  Serious: No
  Sender: FDA-Public Use
  Company Number: US-BOEHRINGER INGELHEIM GMBH, GERMANY-2006-BP-04940BP

PATIENT
  Sex: Male

DRUGS (9)
  1. SPIRIVA [Suspect]
     Indication: CHRONIC OBSTRUCTIVE PULMONARY DISEASE
     Route: 055
     Dates: start: 20030101, end: 20050501
  2. SPIRIVA [Suspect]
     Indication: EMPHYSEMA
     Route: 055
     Dates: start: 20060101
  3. ALBUTEROL [Concomitant]
  4. ANDRODERM [Concomitant]
  5. ASPIRIN [Concomitant]
  6. FORADIL [Concomitant]
     Indication: EMPHYSEMA
     Route: 055
  7. ADVAIR DISKUS 100/50 [Concomitant]
     Indication: EMPHYSEMA
     Route: 055
  8. PROSCAR [Concomitant]
     Indication: PROSTATOMEGALY
     Route: 048
     Dates: start: 20070101
  9. HYTRIN [Concomitant]
     Indication: PROSTATOMEGALY
     Route: 048

REACTIONS (4)
  - CONSTIPATION [None]
  - DYSPHONIA [None]
  - DYSPNOEA [None]
  - LIP SWELLING [None]
